FAERS Safety Report 23585401 (Version 1)
Quarter: 2024Q1

REPORT INFORMATION
  Report Type: Spontaneous
  Country: US (occurrence: US)
  Receive Date: 20240301
  Receipt Date: 20240301
  Transmission Date: 20240409
  Serious: Yes (Hospitalization)
  Sender: FDA-Public Use
  Company Number: US-Oxford Pharmaceuticals, LLC-2153901

PATIENT
  Age: 22 Year
  Sex: Female

DRUGS (1)
  1. GLYCOPYRROLATE [Suspect]
     Active Substance: GLYCOPYRROLATE
     Route: 048

REACTIONS (3)
  - Anisocoria [Recovering/Resolving]
  - Mydriasis [Recovering/Resolving]
  - Accidental exposure to product [Unknown]
